FAERS Safety Report 26046554 (Version 1)
Quarter: 2025Q4

REPORT INFORMATION
  Report Type: Spontaneous
  Country: US (occurrence: None)
  Receive Date: 20251113
  Receipt Date: 20251113
  Transmission Date: 20260117
  Serious: Yes (Death)
  Sender: FDA-CTU
  Company Number: None

PATIENT
  Age: 73 Year
  Sex: Female
  Weight: 76.5 kg

DRUGS (12)
  1. POMALYST [Suspect]
     Active Substance: POMALIDOMIDE
     Indication: Plasma cell myeloma
     Dates: start: 20250730, end: 20250929
  2. ALPRAZOLAM [Concomitant]
     Active Substance: ALPRAZOLAM
  3. AMLODIPINE BESYLATE [Concomitant]
     Active Substance: AMLODIPINE BESYLATE
  4. famotidine 20 mg tablet [Concomitant]
  5. fentanyl 100 mcg/hr transdermal patch, [Concomitant]
  6. furosemide 20 mg table [Concomitant]
  7. hydromorphone 4 mg tablet [Concomitant]
  8. LOSARTAN [Concomitant]
     Active Substance: LOSARTAN
  9. montelukast 10 mg table [Concomitant]
  10. pregabalin 150 mg capsule [Concomitant]
  11. temazepam 15 mg capsule [Concomitant]
  12. XARELTO [Concomitant]
     Active Substance: RIVAROXABAN

REACTIONS (1)
  - Death [None]

NARRATIVE: CASE EVENT DATE: 20251105
